FAERS Safety Report 9902942 (Version 4)
Quarter: 2014Q1

REPORT INFORMATION
  Report Type: Report from Study
  Country: ZA (occurrence: ZA)
  Receive Date: 20140217
  Receipt Date: 20140326
  Transmission Date: 20141002
  Serious: Yes (Other)
  Sender: FDA-Public Use
  Company Number: PHHY2014ZA016868

PATIENT
  Age: 59 Year
  Sex: Male

DRUGS (3)
  1. ACLASTA [Suspect]
     Indication: OSTEOPOROSIS
     Dosage: 5 MG/100ML
     Route: 042
     Dates: start: 2012
  2. CALCIFEROL [Concomitant]
     Dosage: (8 OR 9 OF THEM)
  3. SALINE [Concomitant]
     Dosage: (BEFORE AND AFTER TOOK AN HOUR)

REACTIONS (3)
  - Cataract [Not Recovered/Not Resolved]
  - Bone disorder [Not Recovered/Not Resolved]
  - Anxiety [Not Recovered/Not Resolved]
